FAERS Safety Report 19467195 (Version 1)
Quarter: 2021Q2

REPORT INFORMATION
  Report Type: Spontaneous
  Country: US (occurrence: US)
  Receive Date: 20210625
  Receipt Date: 20210625
  Transmission Date: 20210717
  Serious: No
  Sender: FDA-Public Use
  Company Number: None

PATIENT
  Age: 26 Year
  Sex: Female

DRUGS (3)
  1. GANIRELIX [Suspect]
     Active Substance: GANIRELIX
     Indication: INFERTILITY
     Route: 058
     Dates: start: 20210318
  2. FOLLISTIM [Suspect]
     Active Substance: FOLLITROPIN
     Indication: INFERTILITY
     Dosage: ?          OTHER FREQUENCY:DAILY ? 10/14 DAYS;?
     Route: 058
     Dates: start: 20210318
  3. ESTRADIOL PATCH 0.1 [Suspect]
     Active Substance: ESTRADIOL

REACTIONS (2)
  - Pruritus [None]
  - Erythema [None]

NARRATIVE: CASE EVENT DATE: 20210624
